FAERS Safety Report 22277102 (Version 1)
Quarter: 2023Q2

REPORT INFORMATION
  Report Type: Spontaneous
  Country: CN (occurrence: CN)
  Receive Date: 20230503
  Receipt Date: 20230503
  Transmission Date: 20230722
  Serious: Yes (Hospitalization, Other)
  Sender: FDA-Public Use
  Company Number: CN-IPCA LABORATORIES LIMITED-IPC-2023-CN-000726

PATIENT

DRUGS (5)
  1. WARFARIN [Interacting]
     Active Substance: WARFARIN
     Indication: Mitral valve incompetence
     Dosage: 1.25 MILLIGRAM, QOD
     Route: 048
  2. WARFARIN [Interacting]
     Active Substance: WARFARIN
     Dosage: 1.875 MILLIGRAM, QOD
     Route: 048
  3. WARFARIN [Interacting]
     Active Substance: WARFARIN
     Dosage: 1.25 MILLIGRAM, QD
     Route: 048
  4. DANDELION [Interacting]
     Active Substance: TARAXACUM OFFICINALE POLLEN
     Indication: Mouth ulceration
     Dosage: UNK
     Route: 065
  5. METOPROLOL SUCCINATE [Concomitant]
     Active Substance: METOPROLOL SUCCINATE
     Indication: Atrial fibrillation
     Dosage: 47.5 MILLIGRAM, QD
     Route: 065

REACTIONS (3)
  - Gastrointestinal haemorrhage [Recovered/Resolved]
  - International normalised ratio increased [Recovered/Resolved]
  - Drug interaction [Unknown]
